FAERS Safety Report 6316119-4 (Version None)
Quarter: 2009Q3

REPORT INFORMATION
  Report Type: 
  Country: None (occurrence: None)
  Receive Date: 20090820
  Receipt Date: 20090814
  Transmission Date: 20100115
  Serious: Yes (Death)
  Sender: FDA-Public Use
  Company Number: PHEH2009US09327

PATIENT
  Sex: Male

DRUGS (1)
  1. EXJADE [Suspect]
     Dosage: 500 MG, QID
     Route: 048
     Dates: start: 20080123, end: 20090722

REACTIONS (2)
  - MALIGNANT NEOPLASM PROGRESSION [None]
  - MYELODYSPLASTIC SYNDROME [None]
